FAERS Safety Report 4344001-0 (Version None)
Quarter: 2004Q2

REPORT INFORMATION
  Report Type: 
  Country: None (occurrence: None)
  Receive Date: 20040419
  Receipt Date: 20040406
  Transmission Date: 20050107
  Serious: Yes (Death)
  Sender: FDA-Public Use
  Company Number: HQWYE618408MAR04

PATIENT
  Age: 57 Year
  Sex: Female

DRUGS (3)
  1. PREMARIN [Suspect]
     Indication: OESTROGEN REPLACEMENT THERAPY
     Dosage: 0.625 MG TABLET DAILY
     Route: 048
     Dates: start: 19961001, end: 19980501
  2. PREMARIN [Suspect]
     Indication: VAGINITIS ATROPHIC
     Dosage: 0.625 MG TABLET DAILY
     Route: 048
     Dates: start: 19961001, end: 19980501
  3. PROVERA [Concomitant]

REACTIONS (3)
  - BREAST CANCER FEMALE [None]
  - METASTASES TO BREAST [None]
  - METASTASES TO CENTRAL NERVOUS SYSTEM [None]
